FAERS Safety Report 9678475 (Version 1)
Quarter: 2013Q4

REPORT INFORMATION
  Report Type: Report from Study
  Country: US (occurrence: US)
  Receive Date: 20131108
  Receipt Date: 20131108
  Transmission Date: 20140711
  Serious: Yes (Other)
  Sender: FDA-Public Use
  Company Number: US-ROCHE-1299466

PATIENT
  Age: 54 Year
  Sex: Female

DRUGS (8)
  1. XOLAIR [Suspect]
     Indication: ASTHMA
     Route: 065
  2. OMEPRAZOLE [Concomitant]
     Route: 065
  3. SERTRALINE [Concomitant]
  4. DUONEB [Concomitant]
  5. PROAIR (UNITED STATES) [Concomitant]
  6. DULERA [Concomitant]
     Dosage: 2 PUFFS BID
     Route: 065
  7. LISINOPRIL [Concomitant]
  8. VITAMIN C [Concomitant]

REACTIONS (11)
  - Cardiomegaly [Unknown]
  - Eye pruritus [Unknown]
  - Lacrimation increased [Unknown]
  - Fatigue [Unknown]
  - Seasonal allergy [Unknown]
  - Poor quality sleep [Unknown]
  - Nasal congestion [Unknown]
  - Nasal discharge discolouration [Recovering/Resolving]
  - Eye oedema [Unknown]
  - Obstructive airways disorder [Unknown]
  - Asthma [Unknown]
